FAERS Safety Report 21555927 (Version 9)
Quarter: 2025Q1

REPORT INFORMATION
  Report Type: Report from Study
  Country: US (occurrence: US)
  Receive Date: 20221104
  Receipt Date: 20250312
  Transmission Date: 20250409
  Serious: Yes (Hospitalization, Other)
  Sender: TAKEDA
  Company Number: US-TAKEDA-2020TUS053427

PATIENT
  Age: 70 Year
  Sex: Female
  Weight: 54 kg

DRUGS (19)
  1. TEDUGLUTIDE [Suspect]
     Active Substance: TEDUGLUTIDE
     Indication: Short-bowel syndrome
     Dosage: 1.97 MILLIGRAM, QD
  2. TEDUGLUTIDE [Suspect]
     Active Substance: TEDUGLUTIDE
     Dosage: UNK UNK, QD
     Dates: start: 20190617
  3. TEDUGLUTIDE [Suspect]
     Active Substance: TEDUGLUTIDE
     Dosage: 0.2 MILLIGRAM, QD
  4. TEDUGLUTIDE [Suspect]
     Active Substance: TEDUGLUTIDE
     Dosage: 0.25 MILLILITER, QD
  5. TEDUGLUTIDE [Suspect]
     Active Substance: TEDUGLUTIDE
     Dosage: 0.25 MILLILITER, QD
  6. TEDUGLUTIDE [Suspect]
     Active Substance: TEDUGLUTIDE
     Dosage: 2.5 MILLIGRAM, QD
  7. THERAFLU EXPRESSMAX NIGHTTIME SEVERE COLD AND COUGH [Concomitant]
     Active Substance: ACETAMINOPHEN\DIPHENHYDRAMINE HYDROCHLORIDE\PHENYLEPHRINE HYDROCHLORIDE
  8. POTASSIUM [Concomitant]
     Active Substance: POTASSIUM
  9. OMEPRAZOLE [Concomitant]
     Active Substance: OMEPRAZOLE
  10. MELATONIN [Concomitant]
     Active Substance: MELATONIN
  11. ASPIRIN [Concomitant]
     Active Substance: ASPIRIN
  12. TRAZODONE HCL [Concomitant]
     Active Substance: TRAZODONE HYDROCHLORIDE
  13. MAGNESIUM [Concomitant]
     Active Substance: MAGNESIUM
  14. VITAMIN D3 [Concomitant]
     Active Substance: CHOLECALCIFEROL
  15. B12 active [Concomitant]
  16. PROTONIX [Concomitant]
     Active Substance: PANTOPRAZOLE SODIUM
  17. VITAMIN B12 [Concomitant]
     Active Substance: CYANOCOBALAMIN
     Indication: Product used for unknown indication
  18. SODIUM ACETATE [Concomitant]
     Active Substance: SODIUM ACETATE
  19. SALINE [Concomitant]
     Active Substance: SODIUM CHLORIDE

REACTIONS (17)
  - Dehydration [Recovering/Resolving]
  - Glaucoma [Unknown]
  - Renal impairment [Unknown]
  - Malaise [Unknown]
  - Weight decreased [Unknown]
  - Nephropathy [Unknown]
  - Illness [Unknown]
  - Gait disturbance [Unknown]
  - Asthenia [Unknown]
  - Product use issue [Unknown]
  - Product packaging quantity issue [Unknown]
  - Inappropriate schedule of product administration [Unknown]
  - Product prescribing issue [Unknown]
  - Appetite disorder [Unknown]
  - Decreased appetite [Not Recovered/Not Resolved]
  - Nasopharyngitis [Unknown]
  - Gastrointestinal stoma complication [Recovering/Resolving]

NARRATIVE: CASE EVENT DATE: 20210225
